FAERS Safety Report 16361691 (Version 1)
Quarter: 2019Q2

REPORT INFORMATION
  Report Type: Spontaneous
  Country: IT (occurrence: IT)
  Receive Date: 20190528
  Receipt Date: 20190528
  Transmission Date: 20190711
  Serious: Yes (Disabling)
  Sender: FDA-Public Use
  Company Number: IT-BAYER-2019-096972

PATIENT
  Age: 24 Year
  Sex: Male
  Weight: 50 kg

DRUGS (1)
  1. CIPROXIN 500 MG [Suspect]
     Active Substance: CIPROFLOXACIN
     Indication: INFECTION
     Dosage: 1000 MG 1 CYCLICAL
     Route: 048

REACTIONS (11)
  - Weight decreased [Not Recovered/Not Resolved]
  - Tremor [Not Recovered/Not Resolved]
  - Diplopia [Not Recovered/Not Resolved]
  - Depression [Not Recovered/Not Resolved]
  - Neurosis [Not Recovered/Not Resolved]
  - Amnesia [Not Recovered/Not Resolved]
  - Gait disturbance [Not Recovered/Not Resolved]
  - Muscle spasms [Not Recovered/Not Resolved]
  - Asthenia [Not Recovered/Not Resolved]
  - Confusional state [Not Recovered/Not Resolved]
  - Paraesthesia [Not Recovered/Not Resolved]

NARRATIVE: CASE EVENT DATE: 20180901
